FAERS Safety Report 18974374 (Version 2)
Quarter: 2021Q2

REPORT INFORMATION
  Report Type: Spontaneous
  Country: US (occurrence: US)
  Receive Date: 20210305
  Receipt Date: 20210419
  Transmission Date: 20210717
  Serious: Yes (Other)
  Sender: FDA-Public Use
  Company Number: US-AMGEN-USASP2021032145

PATIENT
  Age: 45 Year
  Sex: Female
  Weight: 114 kg

DRUGS (15)
  1. OTEZLA [Suspect]
     Active Substance: APREMILAST
     Indication: PSORIATIC ARTHROPATHY
     Dosage: 30 MILLIGRAM, BID
     Route: 048
     Dates: start: 20200902
  2. VITRON?C [Concomitant]
     Active Substance: ASCORBIC ACID\IRON
     Dosage: 65 MILLIGRAM, QD
     Route: 048
  3. COZAAR [Concomitant]
     Active Substance: LOSARTAN POTASSIUM
     Dosage: 75 MILLIGRAM, QD
     Route: 048
  4. TEMOVATE [Concomitant]
     Active Substance: CLOBETASOL PROPIONATE
     Dosage: 50 MILLILITER AND 180 MG TWO TIME A DAY AS NEEDED
  5. VITAMIN D3 [Concomitant]
     Active Substance: CHOLECALCIFEROL
     Dosage: 10 MICROGRAM, QD
     Route: 048
  6. PROZAC [Concomitant]
     Active Substance: FLUOXETINE HYDROCHLORIDE
     Dosage: 10 MILLIGRAM, QD
     Route: 048
  7. HYDROCORTISONE. [Concomitant]
     Active Substance: HYDROCORTISONE
     Dosage: 2.5 PERCENT, AS NECESSARY
  8. PEPCID [Concomitant]
     Active Substance: FAMOTIDINE
     Dosage: 40 MILLIGRAM, BID
     Route: 048
  9. FOLIC ACID. [Concomitant]
     Active Substance: FOLIC ACID
     Dosage: 2 DOSAGE FORM, BID
     Route: 048
  10. DESOWEN [Concomitant]
     Active Substance: DESONIDE
     Dosage: 1 APPLICATION BID
     Route: 061
  11. FLUOCINONIDE. [Concomitant]
     Active Substance: FLUOCINONIDE
     Indication: PSORIASIS
     Dosage: UNK
     Dates: end: 20200526
  12. COVID?19 VACCINE NOS. [Concomitant]
     Active Substance: COVID-19 VACCINE NOS
  13. TOPROL XL [Concomitant]
     Active Substance: METOPROLOL SUCCINATE
     Dosage: 50 MILLIGRAM, QD
     Route: 048
  14. CLOBETASOL [Concomitant]
     Active Substance: CLOBETASOL
     Indication: PSORIASIS
     Dosage: UNK
     Dates: start: 20200526
  15. NIZORAL [Concomitant]
     Active Substance: KETOCONAZOLE
     Indication: RASH
     Dosage: UNK UNK, AS NECESSARY
     Route: 061

REACTIONS (4)
  - Heavy menstrual bleeding [Not Recovered/Not Resolved]
  - Headache [Not Recovered/Not Resolved]
  - Appetite disorder [Not Recovered/Not Resolved]
  - Psoriatic arthropathy [Not Recovered/Not Resolved]

NARRATIVE: CASE EVENT DATE: 202103
